FAERS Safety Report 9937364 (Version 2)
Quarter: 2014Q1

REPORT INFORMATION
  Report Type: Spontaneous
  Country: US (occurrence: US)
  Receive Date: 20140303
  Receipt Date: 20140304
  Transmission Date: 20141002
  Serious: No
  Sender: FDA-Public Use
  Company Number: US-009507513-1402USA013721

PATIENT
  Sex: Female
  Weight: 53.52 kg

DRUGS (11)
  1. CLARITIN [Suspect]
     Indication: SINUS DISORDER
     Dosage: 10 MG, QD
     Route: 048
  2. LIPITOR [Concomitant]
     Indication: BLOOD CHOLESTEROL INCREASED
     Dosage: 10 MG, UNKNOWN
  3. VALSARTAN [Concomitant]
     Indication: HYPERTENSION
     Dosage: 80 MG, UNKNOWN
  4. CARVEDILOL [Concomitant]
     Indication: HYPERTENSION
     Dosage: UNK, BID
  5. ASPIRIN [Concomitant]
     Indication: PRODUCT USED FOR UNKNOWN INDICATION
     Dosage: 81 MG, QD
  6. CALTRATE + D [Concomitant]
     Indication: OSTEOPOROSIS
     Dosage: 600 MG, UNKNOWN
  7. OMEGA-3 MARINE TRIGLYCERIDES [Concomitant]
     Indication: ROUTINE HEALTH MAINTENANCE
     Dosage: UNK, UNKNOWN
  8. LEVBID [Concomitant]
     Indication: IRRITABLE BOWEL SYNDROME
     Dosage: 0.375 MG, PRN
  9. NITROSTAT [Concomitant]
     Indication: ANGINA PECTORIS
     Dosage: 0.4 MG, PRN
  10. LACTAID [Concomitant]
     Indication: COW^S MILK INTOLERANCE
     Dosage: UNK, PRN
  11. VITAMIN E [Concomitant]
     Indication: EYE DISORDER
     Dosage: UNK, UNKNOWN

REACTIONS (1)
  - Epistaxis [Recovered/Resolved]
